FAERS Safety Report 10007333 (Version 1)
Quarter: 2014Q1

REPORT INFORMATION
  Report Type: Spontaneous
  Country: US (occurrence: None)
  Receive Date: 20140312
  Receipt Date: 20140312
  Transmission Date: 20141002
  Serious: Yes (Hospitalization)
  Sender: FDA-Public Use
  Company Number: None

PATIENT
  Age: 32 Year
  Sex: Male
  Weight: 107.3 kg

DRUGS (2)
  1. SUCCINYLCHOLINE [Suspect]
     Indication: ANAESTHESIA
     Dates: start: 20140122, end: 20140122
  2. METHOHEXITAL [Suspect]
     Indication: ANAESTHESIA
     Dates: start: 20140122, end: 20140122

REACTIONS (2)
  - Pyrexia [None]
  - Muscle rigidity [None]
